FAERS Safety Report 25918915 (Version 1)
Quarter: 2025Q4

REPORT INFORMATION
  Report Type: Spontaneous
  Country: EU (occurrence: EU)
  Receive Date: 20251014
  Receipt Date: 20251014
  Transmission Date: 20260118
  Serious: Yes (Hospitalization)
  Sender: SANDOZ
  Company Number: None

PATIENT
  Age: 79 Year
  Sex: Female
  Weight: 65 kg

DRUGS (8)
  1. BISOPROLOL FUMARATE [Concomitant]
     Active Substance: BISOPROLOL FUMARATE
     Indication: Product used for unknown indication
     Route: 065
  2. BISOPROLOL FUMARATE [Concomitant]
     Active Substance: BISOPROLOL FUMARATE
     Indication: Product used for unknown indication
     Route: 065
  3. IRBESARTAN [Concomitant]
     Active Substance: IRBESARTAN
     Indication: Product used for unknown indication
     Route: 065
  4. PANTOPRAZOLE SODIUM [Concomitant]
     Active Substance: PANTOPRAZOLE SODIUM
     Indication: Product used for unknown indication
     Route: 065
  5. SIMVASTATIN [Concomitant]
     Active Substance: SIMVASTATIN
     Indication: Product used for unknown indication
     Route: 065
  6. SIMVASTATIN [Concomitant]
     Active Substance: SIMVASTATIN
     Indication: Product used for unknown indication
     Route: 065
  7. IBUPROFEN [Interacting]
     Active Substance: IBUPROFEN
     Indication: Back pain
     Dosage: IBUPROFEN 400 MG TWO TABLETS AS NEEDED.
     Route: 048
     Dates: start: 20250101, end: 20250219
  8. XARELTO [Interacting]
     Active Substance: RIVAROXABAN
     Indication: Thrombosis prophylaxis
     Dosage: XARELTO 20 MG DAILY. START DATE OF THERAPY ASSIGNED OFFICIALLY.
     Route: 048

REACTIONS (2)
  - Drug interaction [Recovered/Resolved]
  - Anaemia [Recovered/Resolved]

NARRATIVE: CASE EVENT DATE: 20250101
